FAERS Safety Report 18943403 (Version 2)
Quarter: 2021Q1

REPORT INFORMATION
  Report Type: Report from Study
  Country: None (occurrence: CA)
  Receive Date: 20210226
  Receipt Date: 20210324
  Transmission Date: 20210420
  Serious: Yes (Hospitalization, Other)
  Sender: FDA-Public Use
  Company Number: CA-ABBVIE-21K-028-3789609-00

PATIENT
  Age: 77 Year
  Sex: Female

DRUGS (1)
  1. RINVOQ [Suspect]
     Active Substance: UPADACITINIB
     Indication: RHEUMATOID ARTHRITIS
     Route: 048
     Dates: start: 20201009, end: 20210222

REACTIONS (8)
  - Infection [Unknown]
  - Joint injury [Unknown]
  - Cellulitis [Unknown]
  - Skin infection [Unknown]
  - Loss of consciousness [Unknown]
  - Pneumonia [Unknown]
  - Joint swelling [Unknown]
  - Skin cancer [Unknown]

NARRATIVE: CASE EVENT DATE: 202102
